FAERS Safety Report 23932395 (Version 4)
Quarter: 2024Q4

REPORT INFORMATION
  Report Type: Spontaneous
  Country: CA (occurrence: CA)
  Receive Date: 20240603
  Receipt Date: 20241007
  Transmission Date: 20250114
  Serious: Yes (Other)
  Sender: PFIZER
  Company Number: CA-PFIZER INC-202400086272

PATIENT
  Age: 27 Year
  Sex: Male

DRUGS (2)
  1. ABRILADA [Suspect]
     Active Substance: ADALIMUMAB-AFZB
     Indication: Hidradenitis
     Dosage: 1 DF,WEEK 0 - 160 MG, WEEK 2 - 80 MG, THEN 40 MG EVERY WEEK STARTING WEEK 4
     Route: 058
     Dates: start: 20231129, end: 202403
  2. ABRILADA [Suspect]
     Active Substance: ADALIMUMAB-AFZB
     Dosage: 1 DF,WEEK 0 - 160 MG, WEEK 2 - 80 MG, THEN 40 MG EVERY WEEK STARTING WEEK 4
     Route: 058
     Dates: start: 20231129, end: 2024

REACTIONS (1)
  - Cranial operation [Unknown]

NARRATIVE: CASE EVENT DATE: 20240101
